FAERS Safety Report 7807255-1 (Version None)
Quarter: 2011Q4

REPORT INFORMATION
  Report Type: 
  Country: None (occurrence: None)
  Receive Date: 20111011
  Receipt Date: 20111006
  Transmission Date: 20120403
  Serious: Yes (Other)
  Sender: FDA-Public Use
  Company Number: US-PFIZER INC-2011147894

PATIENT
  Sex: Male

DRUGS (1)
  1. CHANTIX [Suspect]
     Indication: SMOKING CESSATION THERAPY
     Dosage: 1 MG, DAILY
     Dates: start: 20071228, end: 20080215

REACTIONS (8)
  - NIGHTMARE [None]
  - SUICIDAL IDEATION [None]
  - EMOTIONAL DISTRESS [None]
  - MENTAL DISORDER [None]
  - DEPRESSION [None]
  - AGGRESSION [None]
  - ABNORMAL BEHAVIOUR [None]
  - IMPAIRED DRIVING ABILITY [None]
